FAERS Safety Report 4618931-6 (Version None)
Quarter: 2005Q2

REPORT INFORMATION
  Report Type: 
  Country: None (occurrence: None)
  Receive Date: 20050302
  Receipt Date: 20040712
  Transmission Date: 20051028
  Serious: Yes (Other)
  Sender: FDA-Public Use
  Company Number: 1199711690

PATIENT
  Age: 83 Year
  Sex: Male
  Weight: 66 kg

DRUGS (6)
  1. TRASYLOL [Suspect]
     Indication: MITRAL VALVE REPAIR
     Dosage: 50 ML, TOTAL DAILY, INTRAVENOUS
     Route: 042
     Dates: start: 19960820
  2. TRASYLOL [Suspect]
     Indication: SURGERY
     Dosage: 50 ML, TOTAL DAILY, INTRAVENOUS
     Route: 042
     Dates: start: 19960820
  3. MIDAZOLAM [Concomitant]
  4. PONCURONIUM [Concomitant]
  5. OMEPRAZOLE [Concomitant]
  6. FAMOTIDINE [Concomitant]

REACTIONS (3)
  - ANAPHYLACTIC REACTION [None]
  - HYPOTENSION [None]
  - PULSE ABSENT [None]
